FAERS Safety Report 13428700 (Version 1)
Quarter: 2017Q2

REPORT INFORMATION
  Report Type: Report from Study
  Country: JP (occurrence: JP)
  Receive Date: 20170411
  Receipt Date: 20170411
  Transmission Date: 20170830
  Serious: Yes (Hospitalization)
  Sender: FDA-Public Use
  Company Number: JP-TEVA-757961ROM

PATIENT
  Age: 71 Year
  Sex: Male

DRUGS (10)
  1. WARFARIN [Concomitant]
     Active Substance: WARFARIN
     Route: 065
  2. POLAPREZINC [Concomitant]
     Active Substance: POLAPREZINC
     Route: 065
  3. VALSARTAN. [Suspect]
     Active Substance: VALSARTAN
     Route: 065
  4. VILDAGLIPTIN [Concomitant]
     Active Substance: VILDAGLIPTIN
     Route: 065
  5. MECOBALAMIN [Concomitant]
     Active Substance: METHYLCOBALAMIN
     Route: 065
  6. RABEPRAZOLE [Concomitant]
     Active Substance: RABEPRAZOLE
     Route: 065
  7. OMBITASVIR, PARITAPREVIR, RITONAVIR [Interacting]
     Active Substance: OMBITASVIR\PARITAPREVIR\RITONAVIR
     Indication: HEPATITIS C
     Dosage: 25/150/100 MG OMBITASVIR/PARITAPREVIR/RITONAVIR FOR 6 WEEKS
     Route: 065
  8. VOGLIBOSE [Concomitant]
     Active Substance: VOGLIBOSE
     Route: 065
  9. EPALRESTAT [Concomitant]
     Active Substance: EPALRESTAT
     Route: 065
  10. CALCIUM CARBONATE. [Concomitant]
     Active Substance: CALCIUM CARBONATE
     Route: 065

REACTIONS (7)
  - Nausea [Recovered/Resolved]
  - Limb injury [Unknown]
  - Pruritus [Recovered/Resolved]
  - Ulcer [Unknown]
  - Fall [Recovered/Resolved]
  - Fall [Unknown]
  - Drug interaction [Recovering/Resolving]
